FAERS Safety Report 24790745 (Version 1)
Quarter: 2024Q4

REPORT INFORMATION
  Report Type: Spontaneous
  Country: MY (occurrence: MY)
  Receive Date: 20241230
  Receipt Date: 20241230
  Transmission Date: 20250114
  Serious: Yes (Life-Threatening, Hospitalization, Disabling, Other)
  Sender: BAUSCH AND LOMB
  Company Number: MY-MLMSERVICE-20241213-PI300719-00117-1

PATIENT
  Age: 62 Year
  Sex: Female

DRUGS (1)
  1. DEXAMETHASONE [Suspect]
     Active Substance: DEXAMETHASONE
     Indication: COVID-19
     Route: 042

REACTIONS (3)
  - Rhinocerebral mucormycosis [Recovered/Resolved]
  - Retinal artery occlusion [Recovered/Resolved]
  - Orbital apex syndrome [Recovered/Resolved]
